FAERS Safety Report 12718172 (Version 1)
Quarter: 2016Q3

REPORT INFORMATION
  Report Type: Report from Study
  Country: GB (occurrence: GB)
  Receive Date: 20160906
  Receipt Date: 20160906
  Transmission Date: 20161109
  Serious: Yes (Other)
  Sender: FDA-Public Use
  Company Number: GB-JNJFOC-20160900955

PATIENT
  Age: 44 Year
  Sex: Female

DRUGS (6)
  1. STELARA [Suspect]
     Active Substance: USTEKINUMAB
     Indication: PSORIASIS
     Route: 058
     Dates: start: 20150810, end: 20160609
  2. CITALOPRAM [Concomitant]
     Active Substance: CITALOPRAM HYDROBROMIDE
     Route: 065
     Dates: start: 20121001
  3. NITROFURANTOIN. [Concomitant]
     Active Substance: NITROFURANTOIN
     Route: 065
     Dates: start: 20160623, end: 20160628
  4. AMOXICILLIN. [Concomitant]
     Active Substance: AMOXICILLIN
     Route: 065
     Dates: start: 20160517, end: 20160524
  5. PROCHLORPERAZINE. [Concomitant]
     Active Substance: PROCHLORPERAZINE
     Route: 065
     Dates: start: 20160517, end: 20160524
  6. LOSARTAN. [Concomitant]
     Active Substance: LOSARTAN
     Route: 065
     Dates: start: 20140529

REACTIONS (1)
  - Malignant melanoma [Recovered/Resolved]

NARRATIVE: CASE EVENT DATE: 20160429
